FAERS Safety Report 10885871 (Version 1)
Quarter: 2015Q1

REPORT INFORMATION
  Report Type: Spontaneous
  Country: US (occurrence: US)
  Receive Date: 20150304
  Receipt Date: 20150304
  Transmission Date: 20150721
  Serious: Yes (Death)
  Sender: FDA-Public Use
  Company Number: US-BANPHARM-20153536

PATIENT
  Age: 33 Year
  Sex: Female

DRUGS (4)
  1. ETHANOL [Suspect]
     Active Substance: ALCOHOL
  2. NALTREXONE [Suspect]
     Active Substance: NALTREXONE
  3. DIPHENHYDRAMINE UNKNOWN PRODUCT/ACETAMINOPHEN [Suspect]
     Active Substance: ACETAMINOPHEN\DIPHENHYDRAMINE
  4. SALICYLATE [Suspect]
     Active Substance: SALICYLIC ACID

REACTIONS (2)
  - Death [Fatal]
  - Exposure via ingestion [None]
